FAERS Safety Report 5124232-2 (Version None)
Quarter: 2006Q4

REPORT INFORMATION
  Report Type: 
  Country: None (occurrence: None)
  Receive Date: 20061010
  Receipt Date: 20061009
  Transmission Date: 20070319
  Serious: Yes (Death)
  Sender: FDA-Public Use
  Company Number: US-SANOFI-SYNTHELABO-F01200602093

PATIENT
  Sex: Female

DRUGS (4)
  1. BEVACIZUMAB [Suspect]
     Route: 042
     Dates: start: 20060801, end: 20060801
  2. LEUCOVORIN CALCIUM [Suspect]
     Route: 042
     Dates: start: 20060801, end: 20060801
  3. FLUOROURACIL [Suspect]
     Dosage: 400 MG/M2 IV BOLUS AND 2400 MG/M2 IV CONTINUOUS INFUSION FOR 46 HOURS, Q2W
     Route: 042
     Dates: start: 20060801, end: 20060802
  4. OXALIPLATIN [Suspect]
     Indication: COLON CANCER STAGE III
     Route: 042
     Dates: start: 20060801, end: 20060801

REACTIONS (3)
  - FATIGUE [None]
  - REFUSAL OF TREATMENT BY PATIENT [None]
  - SUDDEN DEATH [None]
